FAERS Safety Report 10081140 (Version 3)
Quarter: 2016Q1

REPORT INFORMATION
  Report Type: Spontaneous
  Country: JP (occurrence: JP)
  Receive Date: 20140416
  Receipt Date: 20160205
  Transmission Date: 20160525
  Serious: Yes (Death, Disabling)
  Sender: FDA-Public Use
  Company Number: JP-MALLINCKRODT-T201401890

PATIENT
  Age: 60 Year
  Sex: Male
  Weight: 44 kg

DRUGS (16)
  1. PROMAC [Concomitant]
     Active Substance: NITROFURANTOIN
     Dosage: 150 MG, UNK
     Route: 048
     Dates: start: 20140206, end: 20140213
  2. METHADONE [Suspect]
     Active Substance: METHADONE HYDROCHLORIDE
     Dosage: 10 MG (20 MG DAILY DOSE)
     Route: 048
     Dates: start: 20140212, end: 20140216
  3. NEXIUM [Concomitant]
     Active Substance: ESOMEPRAZOLE MAGNESIUM
     Dosage: 20 MG, UNK
     Route: 048
     Dates: start: 20131122, end: 20140216
  4. CELECOX [Concomitant]
     Active Substance: CELECOXIB
     Dosage: 400 MG, UNK
     Route: 048
     Dates: start: 20131228, end: 20140210
  5. LECICARBON [Concomitant]
     Active Substance: SODIUM BICARBONATE\SODIUM PHOSPHATE, MONOBASIC
     Dosage: 1 DF, UNK
     Route: 054
     Dates: start: 20140208
  6. OXYCONTIN [Concomitant]
     Active Substance: OXYCODONE HYDROCHLORIDE
     Dosage: 10 MG, UNK
     Route: 048
     Dates: start: 20140105, end: 20140208
  7. MAGMITT [Concomitant]
     Active Substance: MAGNESIUM OXIDE
     Dosage: 990 MG, UNK
     Route: 048
     Dates: start: 20140105, end: 20140216
  8. ZOMETA [Concomitant]
     Active Substance: ZOLEDRONIC ACID
     Dosage: 4 MG, UNK
     Route: 051
     Dates: start: 20140207, end: 20140207
  9. OXINORM [Concomitant]
     Active Substance: OXYCODONE HYDROCHLORIDE
     Dosage: 5 MG, PRN
     Route: 048
     Dates: start: 20140204
  10. DORMICUM [Concomitant]
     Active Substance: MIDAZOLAM\MIDAZOLAM HYDROCHLORIDE
     Dosage: 20 G, UNK
     Route: 051
     Dates: start: 20140219, end: 20140226
  11. METHADONE [Suspect]
     Active Substance: METHADONE HYDROCHLORIDE
     Indication: CANCER PAIN
     Dosage: 5 MG (15 MG DAILY DOSE)
     Route: 048
     Dates: start: 20140205, end: 20140211
  12. MUCODYNE [Concomitant]
     Active Substance: CARBOCYSTEINE
     Dosage: 1500 MG, UNK
     Route: 048
     Dates: start: 20131114, end: 20140210
  13. CRAVIT [Concomitant]
     Active Substance: LEVOFLOXACIN
     Dosage: 500 MG, UNK
     Route: 048
     Dates: start: 20140212, end: 20140217
  14. MEROPEN [Concomitant]
     Active Substance: MEROPENEM
     Dosage: 0.5 G, UNK
     Route: 051
     Dates: start: 20140216, end: 20140217
  15. MORPHINE HYDROCHLORIDE [Concomitant]
     Active Substance: MORPHINE HYDROCHLORIDE
     Dosage: 20 G, UNK
     Route: 051
     Dates: start: 20140217, end: 20140226
  16. PANTOSIN [Concomitant]
     Active Substance: PANTETHINE
     Dosage: 300 MG, UNK
     Route: 048
     Dates: start: 20140105, end: 20140216

REACTIONS (3)
  - Respiratory failure [Fatal]
  - Pyrexia [Not Recovered/Not Resolved]
  - Inflammation [Not Recovered/Not Resolved]

NARRATIVE: CASE EVENT DATE: 20140212
